FAERS Safety Report 4452237-3 (Version None)
Quarter: 2004Q3

REPORT INFORMATION
  Report Type: 
  Country: None (occurrence: None)
  Receive Date: 20040917
  Receipt Date: 20040810
  Transmission Date: 20050211
  Serious: Yes (Hospitalization)
  Sender: FDA-Public Use
  Company Number: 200413018FR

PATIENT
  Age: 65 Year
  Sex: Male
  Weight: 63 kg

DRUGS (14)
  1. ARAVA [Suspect]
     Indication: RHEUMATOID ARTHRITIS
     Route: 048
     Dates: start: 20010116, end: 20040101
  2. ENBREL [Suspect]
     Indication: RHEUMATOID ARTHRITIS
     Route: 058
     Dates: start: 20000316, end: 20000622
  3. REMICADE [Suspect]
     Indication: RHEUMATOID ARTHRITIS
     Route: 042
     Dates: start: 20000101, end: 20001101
  4. CHLORAMINOPHENE [Suspect]
     Indication: RHEUMATOID ARTHRITIS
     Route: 048
  5. COZAAR [Suspect]
     Route: 048
  6. NOVATREX ^LEDERLE^ [Suspect]
     Indication: RHEUMATOID ARTHRITIS
     Route: 048
     Dates: start: 20000715, end: 20010101
  7. CORTANCYL [Concomitant]
     Route: 048
     Dates: start: 20040601
  8. LASIX [Concomitant]
     Route: 048
  9. BISOPROLOL FUMARATE [Concomitant]
     Route: 048
  10. ASPIRIN [Concomitant]
     Route: 048
  11. PRAVASTATIN [Concomitant]
     Route: 048
  12. MOPRAL [Concomitant]
     Route: 048
  13. PENTASA [Concomitant]
     Dates: start: 20040601
  14. TRAMADOL HCL [Concomitant]

REACTIONS (9)
  - BACK PAIN [None]
  - CROHN'S DISEASE [None]
  - DIARRHOEA [None]
  - EPIDURITIS [None]
  - ILEAL ULCER [None]
  - OESOPHAGEAL ULCER [None]
  - SPEECH DISORDER [None]
  - SPINAL DISORDER [None]
  - T-CELL LYMPHOMA [None]
